FAERS Safety Report 9435728 (Version 1)
Quarter: 2013Q3

REPORT INFORMATION
  Report Type: Spontaneous
  Country: US (occurrence: US)
  Receive Date: 20130730
  Receipt Date: 20130730
  Transmission Date: 20140515
  Serious: Yes (Other)
  Sender: FDA-Public Use
  Company Number: US-ZYDUS-001797

PATIENT
  Age: 89 Year
  Sex: Female

DRUGS (5)
  1. AMLODIPINE (AMLODIPINE) [Suspect]
     Route: 048
     Dates: start: 20060830
  2. SPIRONOLACTONE (SPIRONOLACTONE) [Suspect]
     Route: 048
     Dates: start: 20081015
  3. DOXAZOSIN [Suspect]
     Route: 048
     Dates: start: 20080616
  4. HYDROCHLOROTHIAZIDE W/OLMESARTAN [Suspect]
     Route: 048
     Dates: start: 20090204
  5. FOSINOPRIL [Suspect]
     Route: 048
     Dates: start: 20060726

REACTIONS (3)
  - Orthostatic hypotension [None]
  - Hyperkalaemia [None]
  - Renal failure [None]
